FAERS Safety Report 22124771 (Version 1)
Quarter: 2023Q1

REPORT INFORMATION
  Report Type: Spontaneous
  Country: CN (occurrence: CN)
  Receive Date: 20230322
  Receipt Date: 20230322
  Transmission Date: 20230417
  Serious: Yes (Death, Other)
  Sender: FDA-Public Use
  Company Number: CN-PFIZER INC-PV202300051226

PATIENT
  Sex: Male

DRUGS (1)
  1. AVIBACTAM SODIUM\CEFTAZIDIME [Suspect]
     Active Substance: AVIBACTAM SODIUM\CEFTAZIDIME
     Indication: Product used for unknown indication
     Dosage: 3 DF, DAILY
     Route: 042
     Dates: start: 20230308

REACTIONS (1)
  - Death [Fatal]

NARRATIVE: CASE EVENT DATE: 20230301
